FAERS Safety Report 25859953 (Version 1)
Quarter: 2025Q3

REPORT INFORMATION
  Report Type: Spontaneous
  Country: US (occurrence: None)
  Receive Date: 20250927
  Receipt Date: 20250927
  Transmission Date: 20251021
  Serious: Yes (Hospitalization, Other)
  Sender: FDA-CTU
  Company Number: None

PATIENT
  Age: 75 Year
  Sex: Female
  Weight: 58.5 kg

DRUGS (8)
  1. RECLAST [Suspect]
     Active Substance: ZOLEDRONIC ACID
     Indication: Osteoporosis
     Route: 042
     Dates: start: 20250911, end: 20250911
  2. OMEPRAZOLE [Concomitant]
     Active Substance: OMEPRAZOLE
  3. Pramepexole [Concomitant]
  4. SYNTHROID [Concomitant]
     Active Substance: LEVOTHYROXINE SODIUM
  5. CARAFATE [Concomitant]
     Active Substance: SUCRALFATE
  6. VITAMIN D [Concomitant]
     Active Substance: VITAMIN D NOS
  7. CALCIUM [Concomitant]
     Active Substance: CALCIUM
  8. VITAMINS [Concomitant]
     Active Substance: VITAMINS

REACTIONS (8)
  - Influenza like illness [None]
  - Pain [None]
  - Paralysis [None]
  - Faeces discoloured [None]
  - Bone pain [None]
  - Myalgia [None]
  - Flank pain [None]
  - Joint range of motion decreased [None]

NARRATIVE: CASE EVENT DATE: 20250912
